FAERS Safety Report 24053819 (Version 1)
Quarter: 2024Q3

REPORT INFORMATION
  Report Type: Other
  Country: CA (occurrence: CA)
  Receive Date: 20240705
  Receipt Date: 20240705
  Transmission Date: 20241017
  Serious: Yes (Disabling)
  Sender: APOTEX
  Company Number: CA-APOTEX-2024AP007824

PATIENT
  Age: 66 Year
  Sex: Female
  Weight: 54.875 kg

DRUGS (1)
  1. LEFLUNOMIDE [Suspect]
     Active Substance: LEFLUNOMIDE
     Indication: Rheumatoid arthritis
     Dosage: 20 MILLIGRAM, QD
     Route: 048

REACTIONS (8)
  - Arthralgia [Recovered/Resolved]
  - Finger deformity [Recovered/Resolved]
  - Gait inability [Recovered/Resolved]
  - Grip strength decreased [Recovered/Resolved]
  - Hand deformity [Recovered/Resolved]
  - Pain in extremity [Recovered/Resolved]
  - Product substitution issue [Recovered/Resolved]
  - Back pain [Recovered/Resolved]
